FAERS Safety Report 7221780-6 (Version None)
Quarter: 2011Q1

REPORT INFORMATION
  Report Type: 
  Country: None (occurrence: None)
  Receive Date: 20110112
  Receipt Date: 20101230
  Transmission Date: 20110831
  Serious: No
  Sender: FDA-Public Use
  Company Number: IT-ELI_LILLY_AND_COMPANY-IT201012006694

PATIENT
  Sex: Male

DRUGS (1)
  1. ADCIRCA [Suspect]
     Indication: PULMONARY ARTERIAL HYPERTENSION
     Dosage: 20 MG, DAILY (1/D)
     Route: 048
     Dates: start: 20101223, end: 20101224

REACTIONS (5)
  - PAIN IN EXTREMITY [None]
  - HYPERGLYCAEMIA [None]
  - HEADACHE [None]
  - VISUAL IMPAIRMENT [None]
  - LABORATORY TEST ABNORMAL [None]
